FAERS Safety Report 23638862 (Version 1)
Quarter: 2024Q1

REPORT INFORMATION
  Report Type: Spontaneous
  Country: US (occurrence: US)
  Receive Date: 20240315
  Receipt Date: 20240315
  Transmission Date: 20240410
  Serious: No
  Sender: FDA-Public Use
  Company Number: US-BAUSCHBL-2024BNL003128

PATIENT
  Age: 84 Year
  Sex: Female

DRUGS (1)
  1. XIIDRA [Suspect]
     Active Substance: LIFITEGRAST
     Indication: Product used for unknown indication
     Route: 065

REACTIONS (5)
  - Discomfort [Unknown]
  - Eye pain [Unknown]
  - Photophobia [Unknown]
  - Lacrimation increased [Unknown]
  - Product packaging quantity issue [Unknown]
